FAERS Safety Report 6065731-9 (Version None)
Quarter: 2009Q1

REPORT INFORMATION
  Report Type: 
  Country: None (occurrence: None)
  Receive Date: 20090202
  Receipt Date: 20090116
  Transmission Date: 20090719
  Serious: Yes (Death)
  Sender: FDA-Public Use
  Company Number: 2009S1000109

PATIENT
  Age: 28 Year
  Sex: Female

DRUGS (5)
  1. ROXICODONE [Suspect]
     Dosage: PO
     Route: 048
     Dates: end: 20070101
  2. BUTALBITAL [Suspect]
     Dosage: PO
     Route: 048
     Dates: end: 20070101
  3. AMITRIPTYLINE HCL [Suspect]
     Dosage: PO
     Route: 048
     Dates: end: 20070101
  4. CARISOPRODOL [Suspect]
     Dosage: PO
     Route: 048
     Dates: end: 20070101
  5. TRAMADOL HCL [Suspect]
     Dosage: PO
     Route: 048
     Dates: end: 20070101

REACTIONS (3)
  - CARDIAC ARREST [None]
  - COMPLETED SUICIDE [None]
  - RESPIRATORY ARREST [None]
